FAERS Safety Report 5387522-4 (Version None)
Quarter: 2007Q3

REPORT INFORMATION
  Report Type: 
  Country: None (occurrence: None)
  Receive Date: 20070712
  Receipt Date: 20070627
  Transmission Date: 20080115
  Serious: Yes (Death, Life-Threatening, Hospitalization)
  Sender: FDA-Public Use
  Company Number: 2007000199

PATIENT
  Age: 75 Year
  Sex: Female

DRUGS (6)
  1. ERLOTINIB (TABLET) [Suspect]
     Indication: NON-SMALL CELL LUNG CANCER
     Dosage: 150 MG (QD), ORAL
     Route: 048
     Dates: start: 20061220, end: 20070124
  2. ALLOPURINOL [Suspect]
  3. OXYBUTYNIN CHLORIDE [Suspect]
  4. KARVEZIDE (KARVEA HCT) [Suspect]
  5. ACC (ACETYLCYSTEINE) [Concomitant]
  6. ASPIRIN [Concomitant]

REACTIONS (5)
  - COLITIS ISCHAEMIC [None]
  - DERMATITIS BULLOUS [None]
  - DIARRHOEA [None]
  - DRY MOUTH [None]
  - STAPHYLOCOCCAL SEPSIS [None]
